FAERS Safety Report 25433840 (Version 1)
Quarter: 2025Q2

REPORT INFORMATION
  Report Type: Spontaneous
  Country: US (occurrence: US)
  Receive Date: 20250613
  Receipt Date: 20250613
  Transmission Date: 20250716
  Serious: Yes (Hospitalization)
  Sender: ACCORD
  Company Number: US-MLMSERVICE-20250528-PI519594-00165-1

PATIENT
  Age: 60 Year
  Sex: Male

DRUGS (5)
  1. GEMCITABINE [Suspect]
     Active Substance: GEMCITABINE
     Indication: Cholangiocarcinoma
  2. METOPROLOL [Concomitant]
     Active Substance: METOPROLOL
     Indication: Supraventricular tachycardia
  3. DURVALUMAB [Concomitant]
     Active Substance: DURVALUMAB
     Indication: Cholangiocarcinoma
  4. CISPLATIN [Concomitant]
     Active Substance: CISPLATIN
     Indication: Cholangiocarcinoma
  5. OLANZAPINE [Concomitant]
     Active Substance: OLANZAPINE
     Indication: Nausea

REACTIONS (3)
  - Renal tubular injury [Recovering/Resolving]
  - Thrombotic microangiopathy [Recovering/Resolving]
  - Off label use [Unknown]
